FAERS Safety Report 20591334 (Version 2)
Quarter: 2022Q1

REPORT INFORMATION
  Report Type: Spontaneous
  Country: US (occurrence: US)
  Receive Date: 20220314
  Receipt Date: 20220318
  Transmission Date: 20220423
  Serious: Yes (Life-Threatening)
  Sender: FDA-Public Use
  Company Number: US-JNJFOC-20220326449

PATIENT

DRUGS (2)
  1. DARZALEX [Suspect]
     Active Substance: DARATUMUMAB
     Indication: Plasma cell myeloma
     Dosage: C1D1
     Route: 058
     Dates: start: 20220202
  2. TTI-622 [Suspect]
     Active Substance: TTI-622
     Indication: Product used for unknown indication
     Dosage: C1D2
     Route: 065
     Dates: start: 20220202, end: 20220203

REACTIONS (1)
  - Platelet count decreased [Recovering/Resolving]

NARRATIVE: CASE EVENT DATE: 20220203
